FAERS Safety Report 20912813 (Version 2)
Quarter: 2022Q4

REPORT INFORMATION
  Report Type: Spontaneous
  Country: HK (occurrence: HK)
  Receive Date: 20220603
  Receipt Date: 20221110
  Transmission Date: 20230112
  Serious: Yes (Death, Other)
  Sender: FDA-Public Use
  Company Number: HK-BRISTOL-MYERS SQUIBB COMPANY-2022-050735

PATIENT

DRUGS (2)
  1. OPDIVO [Suspect]
     Active Substance: NIVOLUMAB
     Indication: Renal cell carcinoma
     Route: 065
  2. YERVOY [Suspect]
     Active Substance: IPILIMUMAB
     Indication: Renal cell carcinoma
     Route: 065

REACTIONS (1)
  - Death [Fatal]

NARRATIVE: CASE EVENT DATE: 20220529
